FAERS Safety Report 23925975 (Version 1)
Quarter: 2024Q2

REPORT INFORMATION
  Report Type: Spontaneous
  Country: US (occurrence: None)
  Receive Date: 20240530
  Receipt Date: 20240530
  Transmission Date: 20240715
  Serious: Yes (Hospitalization, Disabling)
  Sender: FDA-Public Use
  Company Number: None

PATIENT
  Age: 24 Year
  Sex: Female
  Weight: 51.75 kg

DRUGS (1)
  1. RISPERIDONE [Suspect]
     Active Substance: RISPERIDONE
     Dates: start: 20120501

REACTIONS (4)
  - Musculoskeletal disorder [None]
  - Musculoskeletal disorder [None]
  - Injection site pain [None]
  - Injection site pain [None]

NARRATIVE: CASE EVENT DATE: 20200910
